FAERS Safety Report 19921210 (Version 1)
Quarter: 2021Q4

REPORT INFORMATION
  Report Type: Spontaneous
  Country: US (occurrence: US)
  Receive Date: 20211006
  Receipt Date: 20211006
  Transmission Date: 20220303
  Serious: No
  Sender: FDA-Public Use
  Company Number: US-AJANTA PHARMA USA INC.-2120230

PATIENT
  Age: 63 Year
  Sex: Female
  Weight: 71.82 kg

DRUGS (3)
  1. ARIPIPRAZOLE [Suspect]
     Active Substance: ARIPIPRAZOLE
     Indication: Depression
     Route: 048
  2. PANTOPRAZOLE SODIUM [Concomitant]
     Active Substance: PANTOPRAZOLE SODIUM
  3. CEPHALEXIN [Concomitant]
     Active Substance: CEPHALEXIN

REACTIONS (11)
  - Tongue disorder [Recovering/Resolving]
  - Tongue biting [Recovering/Resolving]
  - Tongue ulceration [Unknown]
  - Balance disorder [Recovered/Resolved]
  - Dry skin [Not Recovered/Not Resolved]
  - Skin haemorrhage [Not Recovered/Not Resolved]
  - Glossodynia [Not Recovered/Not Resolved]
  - Chronic cheek biting [Not Recovered/Not Resolved]
  - Scratch [Not Recovered/Not Resolved]
  - Dry mouth [Not Recovered/Not Resolved]
  - Pruritus [Not Recovered/Not Resolved]

NARRATIVE: CASE EVENT DATE: 20200801
